FAERS Safety Report 7648205-0 (Version None)
Quarter: 2011Q3

REPORT INFORMATION
  Report Type: 
  Country: None (occurrence: None)
  Receive Date: 20110801
  Receipt Date: 20110726
  Transmission Date: 20111222
  Serious: No
  Sender: FDA-Public Use
  Company Number: US-PFIZER INC-2011113994

PATIENT
  Sex: Female

DRUGS (3)
  1. PREMPRO [Suspect]
     Dosage: 0.3/0.15 MG, DAILY
     Route: 048
     Dates: start: 20110101
  2. PREMPRO [Suspect]
     Indication: HOT FLUSH
     Dosage: 0.625/0.15 MG, DAILY
     Route: 048
     Dates: start: 20080101
  3. PREMPRO [Suspect]
     Indication: MENOPAUSAL SYMPTOMS
     Dosage: 0.625/5 MG, DAILY
     Route: 048

REACTIONS (1)
  - VISION BLURRED [None]
